FAERS Safety Report 5637750-5 (Version None)
Quarter: 2008Q1

REPORT INFORMATION
  Report Type: 
  Country: None (occurrence: None)
  Receive Date: 20080219
  Receipt Date: 20080214
  Transmission Date: 20080703
  Serious: Yes (Death)
  Sender: FDA-Public Use
  Company Number: 2008-00865

PATIENT
  Age: 59 Year
  Sex: Male

DRUGS (7)
  1. FIORINAL W/CODEINE [Suspect]
  2. LISINOPRIL [Suspect]
  3. DIPHENHYDRAMINE HCL [Suspect]
  4. FIORICET [Suspect]
  5. NITROGLYCERIN [Suspect]
  6. ANTIHISTAMINE/DECONGESTANT [Suspect]
  7. CALCIUM(CALCIUM) [Suspect]

REACTIONS (1)
  - DEATH [None]
